FAERS Safety Report 5330067-8 (Version None)
Quarter: 2007Q2

REPORT INFORMATION
  Report Type: 
  Country: None (occurrence: None)
  Receive Date: 20070521
  Receipt Date: 20070510
  Transmission Date: 20071010
  Serious: Yes (Life-Threatening, Hospitalization)
  Sender: FDA-Public Use
  Company Number: FR-ROCHE-496892

PATIENT
  Age: 52 Year
  Sex: Male

DRUGS (6)
  1. CAPECITABINE [Suspect]
     Indication: METASTATIC GASTRIC CANCER
     Dosage: FROM DAY 2 TO FIFTEEN OF A THREE WEEK CYCLE.
     Route: 048
     Dates: end: 20060119
  2. EPIRUBICIN [Suspect]
     Indication: METASTATIC GASTRIC CANCER
     Route: 042
     Dates: end: 20060119
  3. CISPLATIN [Suspect]
     Indication: METASTATIC GASTRIC CANCER
     Route: 042
     Dates: end: 20060119
  4. DURAGESIC-100 [Concomitant]
     Dates: start: 20051208
  5. PRIMPERAN INJ [Concomitant]
     Dates: start: 20060105, end: 20060119
  6. BICARBONATE [Concomitant]
     Dates: start: 20060105

REACTIONS (3)
  - AGRANULOCYTOSIS [None]
  - MUCOSAL INFLAMMATION [None]
  - PYREXIA [None]
